FAERS Safety Report 5822008-1 (Version None)
Quarter: 2008Q3

REPORT INFORMATION
  Report Type: 
  Country: None (occurrence: None)
  Receive Date: 20080724
  Receipt Date: 20080714
  Transmission Date: 20090109
  Serious: Yes (Hospitalization)
  Sender: FDA-Public Use
  Company Number: BR-ABBOTT-08P-020-0459990-00

PATIENT
  Sex: Male
  Weight: 81 kg

DRUGS (1)
  1. HUMIRA [Suspect]
     Indication: ANKYLOSING SPONDYLITIS
     Dosage: 1 APPLICATION EVERY 14 DAYS
     Route: 058
     Dates: start: 20070919, end: 20080330

REACTIONS (1)
  - MITRAL VALVE INCOMPETENCE [None]
